FAERS Safety Report 5820957-1 (Version None)
Quarter: 2008Q3

REPORT INFORMATION
  Report Type: 
  Country: None (occurrence: None)
  Receive Date: 20080724
  Receipt Date: 20080716
  Transmission Date: 20090109
  Serious: Yes (Hospitalization)
  Sender: FDA-Public Use
  Company Number: AU-WYE-H03869008

PATIENT
  Age: 76 Year
  Sex: Male

DRUGS (7)
  1. PANTOPRAZOLE SODIUM [Suspect]
  2. ATORVASTATIN CALCIUM [Concomitant]
     Dosage: UNKNOWN
  3. METOCLOPRAMIDE [Concomitant]
     Dosage: UNKNOWN
  4. PROCHLORPERAZINE [Concomitant]
     Dosage: UNKNOWN
  5. TILUDRONATE SODIUM [Concomitant]
     Dosage: UNKNOWN
  6. ACETYLSALICYLIC ACID SRT [Concomitant]
     Dosage: UNKNOWN
  7. FELODIPINE [Concomitant]
     Dosage: UNKNOWN

REACTIONS (2)
  - NEPHRITIS INTERSTITIAL [None]
  - RENAL FAILURE ACUTE [None]
